FAERS Safety Report 17885844 (Version 1)
Quarter: 2020Q2

REPORT INFORMATION
  Report Type: Spontaneous
  Country: SI (occurrence: SI)
  Receive Date: 20200611
  Receipt Date: 20200611
  Transmission Date: 20200714
  Serious: Yes (Other)
  Sender: FDA-Public Use
  Company Number: SI-MYLANLABS-2020M1055538

PATIENT
  Age: 62 Year
  Sex: Female

DRUGS (8)
  1. CISPLATIN W/GEMCITABINE [Concomitant]
     Indication: PRODUCT USED FOR UNKNOWN INDICATION
     Dosage: 70 MG/M2
     Route: 065
  2. CISPLATIN W/GEMCITABINE [Concomitant]
     Dosage: 30 MG/M2, 1ST AND 8TH DAY
     Route: 065
  3. ALPELISIB [Concomitant]
     Active Substance: ALPELISIB
     Indication: PRODUCT USED FOR UNKNOWN INDICATION
     Dosage: UNK
     Route: 065
  4. PALBOCICLIB [Concomitant]
     Active Substance: PALBOCICLIB
     Indication: PRODUCT USED FOR UNKNOWN INDICATION
     Dosage: UNK
     Route: 065
     Dates: start: 201809
  5. FULVESTRANT. [Suspect]
     Active Substance: FULVESTRANT
     Indication: PRODUCT USED FOR UNKNOWN INDICATION
     Dosage: UNK
     Route: 065
     Dates: start: 201809, end: 201908
  6. LETROZOLE. [Suspect]
     Active Substance: LETROZOLE
     Indication: PRODUCT USED FOR UNKNOWN INDICATION
     Dosage: UNK
     Route: 065
     Dates: start: 201709, end: 201809
  7. CAPECITABINE. [Suspect]
     Active Substance: CAPECITABINE
     Indication: PRODUCT USED FOR UNKNOWN INDICATION
     Dosage: UNK
     Route: 065
     Dates: start: 201908, end: 201912
  8. PACLITAXEL. [Concomitant]
     Active Substance: PACLITAXEL
     Indication: PRODUCT USED FOR UNKNOWN INDICATION
     Dosage: UNK
     Route: 065

REACTIONS (20)
  - Metastases to liver [Unknown]
  - Malignant peritoneal neoplasm [Unknown]
  - Fungal infection [Unknown]
  - Fatigue [Unknown]
  - Vomiting [Unknown]
  - Neoplasm [Unknown]
  - Carbohydrate antigen 15-3 increased [Not Recovered/Not Resolved]
  - Hepatic lesion [Not Recovered/Not Resolved]
  - Pelvic fluid collection [Unknown]
  - Abdominal pain upper [Unknown]
  - Pain [Unknown]
  - Ear pain [Unknown]
  - Pyrexia [Unknown]
  - Lymphadenopathy [Unknown]
  - Peritoneal fluid analysis abnormal [Unknown]
  - Adenocarcinoma [Not Recovered/Not Resolved]
  - Polyp [Unknown]
  - Osteoporosis [Unknown]
  - Cough [Unknown]
  - Metastases to bone [Unknown]

NARRATIVE: CASE EVENT DATE: 202003
